FAERS Safety Report 21504858 (Version 5)
Quarter: 2023Q1

REPORT INFORMATION
  Report Type: Report from Study
  Country: FR (occurrence: FR)
  Receive Date: 20221025
  Receipt Date: 20230315
  Transmission Date: 20230417
  Serious: Yes (Hospitalization, Other)
  Sender: FDA-Public Use
  Company Number: FR-GILEAD-2022-0594963

PATIENT
  Sex: Female
  Weight: 55 kg

DRUGS (11)
  1. SACITUZUMAB GOVITECAN-HZIY [Suspect]
     Active Substance: SACITUZUMAB GOVITECAN-HZIY
     Indication: Triple negative breast cancer
     Dosage: 10 MG/KG, CYCLE 1, DAYS 1,8
     Route: 042
     Dates: start: 20220425, end: 20220502
  2. SACITUZUMAB GOVITECAN-HZIY [Suspect]
     Active Substance: SACITUZUMAB GOVITECAN-HZIY
     Dosage: 7.5 MG, CYCLE 2, DAYS 1, 8
     Route: 042
     Dates: start: 20220718, end: 20220725
  3. SACITUZUMAB GOVITECAN-HZIY [Suspect]
     Active Substance: SACITUZUMAB GOVITECAN-HZIY
     Dosage: 7.5 MG, CYCLE 3, DAYS 1, 8
     Route: 042
     Dates: start: 20220808, end: 20220817
  4. SACITUZUMAB GOVITECAN-HZIY [Suspect]
     Active Substance: SACITUZUMAB GOVITECAN-HZIY
     Dosage: 7.5 MG, CYCLE 4, DAYS 1, 8
     Route: 042
     Dates: start: 20220829, end: 20220905
  5. SACITUZUMAB GOVITECAN-HZIY [Suspect]
     Active Substance: SACITUZUMAB GOVITECAN-HZIY
     Dosage: 7.5 MG, CYCLE 5, DAYS 1, 8
     Route: 042
     Dates: start: 20220919, end: 20220926
  6. SACITUZUMAB GOVITECAN-HZIY [Suspect]
     Active Substance: SACITUZUMAB GOVITECAN-HZIY
     Dosage: 7.5 MG, CYCLE 6, DAYS 1, 8
     Route: 042
     Dates: start: 20221107, end: 20221114
  7. SACITUZUMAB GOVITECAN-HZIY [Suspect]
     Active Substance: SACITUZUMAB GOVITECAN-HZIY
     Dosage: 7.5 MG, CYCLE 7, DAYS 1, 8
     Route: 042
     Dates: start: 20221128, end: 20221205
  8. SACITUZUMAB GOVITECAN-HZIY [Suspect]
     Active Substance: SACITUZUMAB GOVITECAN-HZIY
     Dosage: 7.5 MG, CYCLE 8, DAYS 1, 8
     Route: 042
     Dates: start: 20221219, end: 20221226
  9. SACITUZUMAB GOVITECAN-HZIY [Suspect]
     Active Substance: SACITUZUMAB GOVITECAN-HZIY
     Dosage: 7.5 MG, CYCLE 9 DAY 1, 8
     Route: 042
     Dates: start: 20230109, end: 20230116
  10. SACITUZUMAB GOVITECAN-HZIY [Suspect]
     Active Substance: SACITUZUMAB GOVITECAN-HZIY
     Dosage: 7.5 MG, CYCLE 10 DAY 1, 8
     Route: 042
     Dates: start: 20230130, end: 20230207
  11. SACITUZUMAB GOVITECAN-HZIY [Suspect]
     Active Substance: SACITUZUMAB GOVITECAN-HZIY
     Dosage: 7.5 MG, CYCLE 11 DAY 1, 8
     Route: 042
     Dates: start: 20230220, end: 20230227

REACTIONS (7)
  - Febrile bone marrow aplasia [Recovered/Resolved]
  - General physical health deterioration [Recovered/Resolved]
  - Febrile neutropenia [Recovered/Resolved]
  - Colitis [Recovered/Resolved]
  - Diarrhoea [Recovered/Resolved]
  - Inappropriate schedule of product administration [Unknown]
  - Inappropriate schedule of product administration [Recovered/Resolved]

NARRATIVE: CASE EVENT DATE: 20220506
